FAERS Safety Report 5245133-5 (Version None)
Quarter: 2007Q1

REPORT INFORMATION
  Report Type: 
  Country: None (occurrence: None)
  Receive Date: 20070223
  Receipt Date: 20070219
  Transmission Date: 20070707
  Serious: Yes (Death)
  Sender: FDA-Public Use
  Company Number: 2007CG00277

PATIENT
  Age: 96 Year
  Sex: Female
  Weight: 55 kg

DRUGS (13)
  1. NEXIUM [Suspect]
     Route: 042
     Dates: start: 20061108, end: 20061108
  2. NEXIUM [Suspect]
     Route: 042
     Dates: start: 20061109, end: 20061113
  3. NEXIUM [Suspect]
     Route: 048
     Dates: start: 20061113
  4. MODOPAR [Concomitant]
     Route: 048
  5. TRIVASTAL [Concomitant]
     Route: 048
     Dates: end: 20061113
  6. DAFLON [Concomitant]
     Route: 048
  7. METEOXANE [Concomitant]
     Route: 048
     Dates: end: 20061101
  8. MOVICOL [Concomitant]
     Dates: end: 20061101
  9. OFLOCET [Concomitant]
     Route: 048
     Dates: start: 20061111
  10. SERESTA [Concomitant]
     Dates: end: 20061113
  11. LASIX [Concomitant]
     Route: 042
     Dates: start: 20061108
  12. KARDEGIC [Concomitant]
     Route: 048
     Dates: end: 20061108
  13. VOLTAREN [Concomitant]
     Route: 048
     Dates: end: 20061108

REACTIONS (9)
  - CONFUSIONAL STATE [None]
  - HALLUCINATION, VISUAL [None]
  - HYPERTHERMIA [None]
  - HYPERTONIA [None]
  - HYPOGLYCAEMIA [None]
  - HYPOGLYCAEMIC COMA [None]
  - HYPONATRAEMIA [None]
  - HYPOPROTEINAEMIA [None]
  - STATUS EPILEPTICUS [None]
